FAERS Safety Report 20896261 (Version 2)
Quarter: 2022Q2

REPORT INFORMATION
  Report Type: Spontaneous
  Country: CN (occurrence: CN)
  Receive Date: 20220531
  Receipt Date: 20220601
  Transmission Date: 20220721
  Serious: Yes (Other)
  Sender: FDA-Public Use
  Company Number: CN-BoehringerIngelheim-2022-BI-172980

PATIENT
  Age: 90 Year
  Sex: Female
  Weight: 63 kg

DRUGS (3)
  1. ALTEPLASE [Suspect]
     Active Substance: ALTEPLASE
     Indication: Cerebral infarction
     Route: 042
     Dates: start: 20220504, end: 20220504
  2. ALTEPLASE [Suspect]
     Active Substance: ALTEPLASE
     Route: 042
     Dates: start: 20220504, end: 20220504
  3. ALTEPLASE [Suspect]
     Active Substance: ALTEPLASE
     Route: 042
     Dates: start: 20220504, end: 20220504

REACTIONS (3)
  - Off label use [Unknown]
  - Haemorrhage intracranial [Recovering/Resolving]
  - Fibrinolysis increased [Recovering/Resolving]

NARRATIVE: CASE EVENT DATE: 20220504
